FAERS Safety Report 16552301 (Version 4)
Quarter: 2019Q3

REPORT INFORMATION
  Report Type: Spontaneous
  Country: US (occurrence: US)
  Receive Date: 20190710
  Receipt Date: 20190926
  Transmission Date: 20191004
  Serious: Yes (Hospitalization)
  Sender: FDA-Public Use
  Company Number: US-PFIZER INC-2019292418

PATIENT
  Age: 65 Year
  Sex: Female
  Weight: 57.6 kg

DRUGS (16)
  1. CALCIUM [Concomitant]
     Active Substance: CALCIUM
     Dosage: 2 DF, DAILY
     Dates: start: 20160427
  2. ESTRACE [Concomitant]
     Active Substance: ESTRADIOL
     Dosage: UNK (EVERY WEEK)
     Route: 067
     Dates: start: 20150114
  3. LYRICA [Suspect]
     Active Substance: PREGABALIN
     Indication: PAIN IN EXTREMITY
     Dosage: 75 MG, (75 MG IN THE EARLY PART OF THE DAY AND THEN TWO AT NIGHT)
     Dates: start: 20180524, end: 2019
  4. BIOTIN [Concomitant]
     Active Substance: BIOTIN
     Dosage: 1 DF, DAILY
     Dates: start: 20160427
  5. ENBREL [Concomitant]
     Active Substance: ETANERCEPT
     Dosage: 1 ML, WEEKLY
     Route: 058
     Dates: start: 20180508
  6. IBUPROFEN. [Concomitant]
     Active Substance: IBUPROFEN
     Dosage: 2400 MG, AS NEEDED
     Route: 048
     Dates: start: 20160427
  7. LOSARTAN. [Concomitant]
     Active Substance: LOSARTAN
     Dosage: 25 MG, 1X/DAY
     Route: 048
     Dates: start: 20170710
  8. VITAMIN C [Concomitant]
     Active Substance: ASCORBIC ACID
     Dosage: UNK
     Dates: start: 20160427
  9. RECLAST [Concomitant]
     Active Substance: ZOLEDRONIC ACID
     Dosage: UNK (5 MG/100 ML ,ONCE ANNUALLY PER PROTOCOL)
     Route: 042
     Dates: start: 20180201
  10. TIZANIDINE. [Concomitant]
     Active Substance: TIZANIDINE
     Dosage: 4 MG, AS NEEDED (EVERY 8 HOURS AS NEEDED NOT TO EXCEED 3 DOSES IN 24 HOURS)
     Route: 048
     Dates: start: 20171023
  11. COMBIGAN [Concomitant]
     Active Substance: BRIMONIDINE TARTRATE\TIMOLOL MALEATE
     Dosage: 1 GTT, 2X/DAY (1 DROP EVERY 12 HOURS)
     Route: 047
     Dates: start: 20160427
  12. ARAVA [Concomitant]
     Active Substance: LEFLUNOMIDE
     Dosage: 10 MG, 1X/DAY
     Route: 048
     Dates: start: 20170929
  13. TRAMADOL. [Concomitant]
     Active Substance: TRAMADOL
     Dosage: 50 MG, AS NEEDED (TAKE 1 TABLET BY ORAL ROUTE EVERY 6 HOURS AS NEEDED)
     Route: 048
     Dates: start: 20161010
  14. VITAMIN D3 [Concomitant]
     Active Substance: CHOLECALCIFEROL
     Dosage: 1 DF, DAILY
     Route: 048
     Dates: start: 20160427
  15. LYRICA [Suspect]
     Active Substance: PREGABALIN
     Indication: NEUROPATHY PERIPHERAL
     Dosage: 100 MG, 3X/DAY
     Route: 048
     Dates: start: 20171010
  16. SERTRALINE [Concomitant]
     Active Substance: SERTRALINE HYDROCHLORIDE
     Dosage: 100 MG, 1X/DAY
     Route: 048
     Dates: start: 20171010

REACTIONS (6)
  - Weight increased [Recovered/Resolved]
  - Therapeutic product effect incomplete [Unknown]
  - Contusion [Unknown]
  - Fatigue [Recovered/Resolved]
  - Pruritus [Unknown]
  - Somnolence [Recovered/Resolved]

NARRATIVE: CASE EVENT DATE: 2018
